FAERS Safety Report 19200130 (Version 1)
Quarter: 2021Q2

REPORT INFORMATION
  Report Type: Spontaneous
  Country: US (occurrence: US)
  Receive Date: 20210430
  Receipt Date: 20210430
  Transmission Date: 20210717
  Serious: No
  Sender: FDA-Public Use
  Company Number: US-ORGANON-O2104USA002386

PATIENT
  Age: 27 Year
  Sex: Female
  Weight: 101.15 kg

DRUGS (1)
  1. NEXPLANON [Suspect]
     Active Substance: ETONOGESTREL
     Indication: CONTRACEPTION
     Dosage: 1 ROD, LEFT ARM
     Route: 059
     Dates: start: 202012

REACTIONS (2)
  - Synovial cyst [Not Recovered/Not Resolved]
  - Implant site irritation [Not Recovered/Not Resolved]

NARRATIVE: CASE EVENT DATE: 20210408
